FAERS Safety Report 10728544 (Version 2)
Quarter: 2015Q2

REPORT INFORMATION
  Report Type: Report from Study
  Country: ES (occurrence: ES)
  Receive Date: 20150122
  Receipt Date: 20150514
  Transmission Date: 20150821
  Serious: Yes (Other)
  Sender: FDA-Public Use
  Company Number: ES-ROCHE-777097

PATIENT
  Age: 51 Year
  Sex: Male
  Weight: 84.7 kg

DRUGS (13)
  1. VEMURAFENIB [Suspect]
     Active Substance: VEMURAFENIB
     Indication: METASTATIC MALIGNANT MELANOMA
     Dosage: LAST DOSE PRIOR TO SAE:02 MAY 2011.
     Route: 048
  2. METOCLOPRAMIDE. [Concomitant]
     Active Substance: METOCLOPRAMIDE
     Route: 065
     Dates: start: 20110505
  3. ZOLEDRONIC ACID [Concomitant]
     Active Substance: ZOLEDRONIC ACID
     Route: 065
     Dates: start: 20110412
  4. FENTANILO [Concomitant]
     Active Substance: FENTANYL
     Dosage: DRUG : FENTANILO CITRATO  TDD : AS NEEDED / MG
     Route: 065
  5. DEXAMETASONA [Concomitant]
     Active Substance: DEXAMETHASONE
     Indication: BACK PAIN
     Route: 048
     Dates: start: 20110325, end: 20110412
  6. LORAZEPAM. [Concomitant]
     Active Substance: LORAZEPAM
     Indication: PROPHYLAXIS
     Route: 048
     Dates: start: 20110325, end: 20110428
  7. ALPRAZOLAM. [Concomitant]
     Active Substance: ALPRAZOLAM
     Route: 065
     Dates: start: 20110505
  8. LATANOPROST. [Concomitant]
     Active Substance: LATANOPROST
     Route: 065
  9. DORZOLAMIDE [Concomitant]
     Active Substance: DORZOLAMIDE
     Indication: GLAUCOMA
     Dosage: FORM: OCULAR
     Route: 050
  10. LACTITOL [Concomitant]
     Active Substance: LACTITOL
     Dosage: DOSE : 1 SACHET
     Route: 065
  11. HYDROMORPHONE [Concomitant]
     Active Substance: HYDROMORPHONE
     Route: 065
     Dates: start: 20110414, end: 20110505
  12. OMEPRAZOLE. [Concomitant]
     Active Substance: OMEPRAZOLE
     Indication: PROPHYLAXIS
     Route: 048
  13. SENNA GLYCOSIDES [Concomitant]
     Indication: CONSTIPATION PROPHYLAXIS
     Dosage: DRUG REPORTED AS GLYCOSIDES SENNOSIDES.
     Route: 048

REACTIONS (1)
  - Pulmonary embolism [Recovered/Resolved]

NARRATIVE: CASE EVENT DATE: 20110503
